FAERS Safety Report 9357444 (Version 1)
Quarter: 2013Q2

REPORT INFORMATION
  Report Type: Spontaneous
  Country: FR (occurrence: FR)
  Receive Date: 20130620
  Receipt Date: 20130620
  Transmission Date: 20140414
  Serious: Yes (Other)
  Sender: FDA-Public Use
  Company Number: FR-JNJFOC-20130609576

PATIENT
  Age: 82 Year
  Sex: Male

DRUGS (5)
  1. XARELTO [Suspect]
     Indication: VENOUS THROMBOSIS LIMB
     Route: 048
     Dates: start: 20120920, end: 20121002
  2. XARELTO [Suspect]
     Indication: CEREBROVASCULAR ACCIDENT
     Route: 048
     Dates: start: 20120920, end: 20121002
  3. XARELTO [Suspect]
     Indication: ATRIAL SEPTAL DEFECT
     Route: 048
     Dates: start: 20120920, end: 20121002
  4. REPAGLINIDE [Concomitant]
     Indication: TYPE 2 DIABETES MELLITUS
     Route: 065
  5. PREVISCAN (FLUINDIONE) [Concomitant]
     Route: 065

REACTIONS (1)
  - Anaemia [Recovering/Resolving]
